FAERS Safety Report 8136107-5 (Version None)
Quarter: 2012Q1

REPORT INFORMATION
  Report Type: 
  Country: None (occurrence: None)
  Receive Date: 20120214
  Receipt Date: 20111031
  Transmission Date: 20120608
  Serious: No
  Sender: FDA-Public Use
  Company Number: US-COVIDIEN/TYCO HEALTHCARE/MALLINCKRODT-T201101734

PATIENT
  Age: 70 Year
  Sex: Female

DRUGS (1)
  1. FENTANYL-100 [Suspect]
     Indication: PAIN
     Dosage: 25 UG/HR, 1 PATCH
     Route: 062
     Dates: start: 20110828, end: 20110828

REACTIONS (2)
  - MALAISE [None]
  - DIZZINESS [None]
